FAERS Safety Report 8353208-7 (Version None)
Quarter: 2012Q2

REPORT INFORMATION
  Report Type: 
  Country: None (occurrence: None)
  Receive Date: 20120511
  Receipt Date: 20120502
  Transmission Date: 20120825
  Serious: Yes (Other)
  Sender: FDA-Public Use
  Company Number: US-ASTRAZENECA-2012SE28529

PATIENT
  Sex: Female

DRUGS (5)
  1. NEXIUM [Suspect]
     Route: 048
  2. PRILOSEC [Suspect]
     Route: 048
  3. ZOCOR [Suspect]
     Route: 065
  4. LIPITOR [Suspect]
     Route: 065
  5. CRESTOR [Suspect]
     Route: 048

REACTIONS (4)
  - CAROTID ARTERY OCCLUSION [None]
  - DRUG EFFECT DECREASED [None]
  - FATIGUE [None]
  - MYALGIA [None]
